FAERS Safety Report 15942535 (Version 2)
Quarter: 2020Q2

REPORT INFORMATION
  Report Type: Spontaneous
  Country: FR (occurrence: FR)
  Receive Date: 20190210
  Receipt Date: 20200429
  Transmission Date: 20200713
  Serious: Yes (Hospitalization, Disabling, Other)
  Sender: FDA-Public Use
  Company Number: PHHY2019FR028051

PATIENT
  Age: 81 Year
  Sex: Female
  Weight: 48 kg

DRUGS (35)
  1. CORDARONE [Suspect]
     Active Substance: AMIODARONE HYDROCHLORIDE
     Dosage: 1 DF, QD, 1 UNIT ON MORNING
     Route: 065
  2. CORDARONE [Suspect]
     Active Substance: AMIODARONE HYDROCHLORIDE
     Dosage: 1 UNIT ON MORNING EXCEPT SUNDAY
     Route: 065
     Dates: start: 201707
  3. CORDARONE [Suspect]
     Active Substance: AMIODARONE HYDROCHLORIDE
     Dosage: UNK
     Route: 065
     Dates: start: 20170810, end: 201802
  4. DIFFU K [Concomitant]
     Active Substance: POTASSIUM CHLORIDE
     Indication: PRODUCT USED FOR UNKNOWN INDICATION
     Dosage: 1 DF, TID, 1 UNIT 3 TIMESDAILY
     Route: 065
     Dates: start: 201707, end: 201707
  5. DIFFU K [Concomitant]
     Active Substance: POTASSIUM CHLORIDE
     Dosage: 1 DF, BID, 1 UNIT TWICE DAILY
     Route: 065
     Dates: start: 201707
  6. ZOLPIDEM [Concomitant]
     Active Substance: ZOLPIDEM TARTRATE
     Indication: PRODUCT USED FOR UNKNOWN INDICATION
     Dosage: UNK
     Route: 065
  7. STILNOX [Concomitant]
     Active Substance: ZOLPIDEM TARTRATE
     Indication: PRODUCT USED FOR UNKNOWN INDICATION
     Dosage: 1 DF, QD
     Route: 065
  8. XARELTO [Concomitant]
     Active Substance: RIVAROXABAN
     Dosage: 1 DF, QD, 1 UNIT ON EVENING
     Route: 065
     Dates: start: 201707
  9. LEVOTHYROX [Concomitant]
     Active Substance: LEVOTHYROXINE
     Indication: PRODUCT USED FOR UNKNOWN INDICATION
     Dosage: 1 DF, QD, 1 UNIT DAILY ON MORNING
     Route: 065
     Dates: start: 2003
  10. CORDARONE [Suspect]
     Active Substance: AMIODARONE HYDROCHLORIDE
     Dosage: UNK
     Route: 065
  11. MOVICOL [Concomitant]
     Active Substance: POLYETHYLENE GLYCOL 3350\POTASSIUM CHLORIDE\SODIUM BICARBONATE\SODIUM CHLORIDE
     Indication: PRODUCT USED FOR UNKNOWN INDICATION
     Dosage: 1 DF, BID, 1 UNIT  TWICE DAILY
     Route: 065
     Dates: start: 201706
  12. CYMBALTA [Concomitant]
     Active Substance: DULOXETINE HYDROCHLORIDE
     Indication: PRODUCT USED FOR UNKNOWN INDICATION
     Route: 065
  13. STILNOX [Concomitant]
     Active Substance: ZOLPIDEM TARTRATE
     Dosage: 10 MG, QD 1 UNIT ON EVENING
     Route: 065
  14. LASILIX [Concomitant]
     Active Substance: FUROSEMIDE
     Dosage: 1 DF, QD, 1 UNIT ON MORNING
     Route: 065
     Dates: start: 20170515, end: 201707
  15. XARELTO [Concomitant]
     Active Substance: RIVAROXABAN
     Indication: PRODUCT USED FOR UNKNOWN INDICATION
     Dosage: 1 DF, QD, 1 UNIT ON EVENING
     Route: 065
     Dates: start: 20170515, end: 201707
  16. DEBRIDAT [Concomitant]
     Active Substance: TRIMEBUTINE MALEATE
     Indication: PRODUCT USED FOR UNKNOWN INDICATION
     Dosage: UNK
     Route: 065
  17. CORDARONE [Suspect]
     Active Substance: AMIODARONE HYDROCHLORIDE
     Indication: PRODUCT USED FOR UNKNOWN INDICATION
     Dosage: 1 UNIT ON MORNING EXCEPT SUNDAY
     Route: 065
  18. AMIODARONE HYDROCHLORIDE. [Suspect]
     Active Substance: AMIODARONE HYDROCHLORIDE
     Indication: PRODUCT USED FOR UNKNOWN INDICATION
     Dosage: 1 UNIT ON MORNING EXCEPT SUNDAY  AND SATURDAY
     Route: 065
     Dates: start: 201801
  19. CORDARONE [Suspect]
     Active Substance: AMIODARONE HYDROCHLORIDE
     Dosage: 2 DF, QD, 2 UNITS ON MORNING
     Route: 065
     Dates: start: 20170515
  20. LASILIX [Concomitant]
     Active Substance: FUROSEMIDE
     Dosage: 1 DF, QD, 1 UNIT ON MORNING
     Route: 065
     Dates: start: 2018
  21. ATENOLOL. [Concomitant]
     Active Substance: ATENOLOL
     Indication: PRODUCT USED FOR UNKNOWN INDICATION
     Dosage: 1 DF, QD, 1 UNIT DAILY
     Route: 065
     Dates: start: 201706
  22. ALDACTONE [Concomitant]
     Active Substance: SPIRONOLACTONE
     Indication: PRODUCT USED FOR UNKNOWN INDICATION
     Dosage: UNK UNK, QD, ? UNITS DAILY
     Route: 065
     Dates: start: 20170803
  23. DIFFU K [Concomitant]
     Active Substance: POTASSIUM CHLORIDE
     Dosage: 2 DF, TID, 2 UNITS 3 TIMES  DAILY
     Route: 065
     Dates: start: 20170803
  24. DIFFU K [Concomitant]
     Active Substance: POTASSIUM CHLORIDE
     Dosage: 3 DF, QD
     Route: 065
  25. CYMBALTA [Concomitant]
     Active Substance: DULOXETINE HYDROCHLORIDE
     Route: 065
  26. FORLAX [Concomitant]
     Active Substance: POLYETHYLENE GLYCOL 4000
     Indication: PRODUCT USED FOR UNKNOWN INDICATION
     Dosage: 1 DF, QD, 1UNIT DAILY
     Route: 065
     Dates: start: 20170803
  27. ATENOLOL. [Concomitant]
     Active Substance: ATENOLOL
     Dosage: 0.5 DF, QD (1 / 2UNIT DAILY ON MORNING)
     Route: 065
     Dates: start: 20170803
  28. LANSOPRAZOLE. [Concomitant]
     Active Substance: LANSOPRAZOLE
     Indication: PRODUCT USED FOR UNKNOWN INDICATION
     Dosage: 1 DF, QD, 1UNIT DAILY
     Route: 065
     Dates: start: 2018
  29. UVEDOSE [Concomitant]
     Active Substance: CHOLECALCIFEROL
     Indication: PRODUCT USED FOR UNKNOWN INDICATION
     Dosage: UNK
     Route: 065
     Dates: start: 2018
  30. UVEDOSE [Concomitant]
     Active Substance: CHOLECALCIFEROL
     Dosage: UNK
     Route: 065
     Dates: start: 2018
  31. CORDARONE [Suspect]
     Active Substance: AMIODARONE HYDROCHLORIDE
     Dosage: 1 DF, QD, 1 UNIT ON MORNING
     Route: 065
  32. DULOXETINE. [Concomitant]
     Active Substance: DULOXETINE
     Indication: PRODUCT USED FOR UNKNOWN INDICATION
     Dosage: 2 DF, QD, 2 UNITS DAILY
     Route: 065
     Dates: start: 20170803
  33. ZOLPIDEM [Concomitant]
     Active Substance: ZOLPIDEM TARTRATE
     Dosage: UNK
     Route: 065
     Dates: start: 2018
  34. LASILIX [Concomitant]
     Active Substance: FUROSEMIDE
     Indication: PRODUCT USED FOR UNKNOWN INDICATION
     Dosage: 1 / 4UNIT ON MORNING
     Route: 065
  35. MODOPAR [Concomitant]
     Active Substance: BENSERAZIDE HYDROCHLORIDE\LEVODOPA
     Indication: PRODUCT USED FOR UNKNOWN INDICATION
     Dosage: 3 DF, QD, 3 UNITS DAILY
     Route: 065
     Dates: start: 2018

REACTIONS (26)
  - Condition aggravated [Unknown]
  - Arterial disorder [Unknown]
  - Optic neuropathy [Unknown]
  - Eye haemorrhage [Unknown]
  - Cardiac failure [Unknown]
  - Diplopia [Unknown]
  - Dyspnoea [Unknown]
  - Optic neuritis [Not Recovered/Not Resolved]
  - Neuropathy peripheral [Unknown]
  - Anaemia [Unknown]
  - Optic atrophy [Unknown]
  - Pneumonia [Unknown]
  - Depression [Unknown]
  - Papilloedema [Unknown]
  - Parkinsonism [Unknown]
  - Hypoxia [Unknown]
  - Visual acuity reduced [Recovering/Resolving]
  - Tremor [Unknown]
  - Cerebellar syndrome [Unknown]
  - Retinal vein thrombosis [Unknown]
  - Pleural effusion [Unknown]
  - Papilloedema [Not Recovered/Not Resolved]
  - Atrial fibrillation [Unknown]
  - Aortic valve calcification [Unknown]
  - Hypercapnia [Unknown]
  - Ophthalmic vein thrombosis [Unknown]

NARRATIVE: CASE EVENT DATE: 201801
